FAERS Safety Report 18971130 (Version 1)
Quarter: 2021Q1

REPORT INFORMATION
  Report Type: Spontaneous
  Country: DE (occurrence: DE)
  Receive Date: 20210305
  Receipt Date: 20210305
  Transmission Date: 20210420
  Serious: Yes (Other)
  Sender: FDA-Public Use
  Company Number: DE-AMGEN-DEUSP2021029236

PATIENT
  Age: 44 Year
  Sex: Male

DRUGS (16)
  1. ETOPOSIDE. [Concomitant]
     Active Substance: ETOPOSIDE
     Dosage: 200 MILLIGRAM/SQ. METER
  2. CYTARABINE. [Concomitant]
     Active Substance: CYTARABINE
     Dosage: 200 MILLIGRAM/SQ. METER
  3. DOXORUBICIN [Concomitant]
     Active Substance: DOXORUBICIN
     Dosage: UNK
  4. NEUPOGEN [Suspect]
     Active Substance: FILGRASTIM
     Indication: STEM CELL TRANSPLANT
     Dosage: 12 MICROGRAM/KILOGRAM, QD FOR 5 DAYS
     Route: 058
  5. ETOPOSIDE. [Concomitant]
     Active Substance: ETOPOSIDE
     Dosage: 75 MILLIGRAM/SQ. METER, DAY 2?5
  6. MELPHALAN. [Concomitant]
     Active Substance: MELPHALAN
     Dosage: 140 MILLIGRAM/SQ. METER
  7. NEUPOGEN [Suspect]
     Active Substance: FILGRASTIM
     Indication: PROPHYLAXIS
     Dosage: 480 MICROGRAM/KILOGRAM, QD FOR 12 DAYS
     Route: 058
  8. CYCLOPHOSPHAMIDE. [Concomitant]
     Active Substance: CYCLOPHOSPHAMIDE
     Dosage: UNK
  9. BICNU [Concomitant]
     Active Substance: CARMUSTINE
     Dosage: 60 MILLIGRAM/SQ. METER, DAY 1
  10. MELPHALAN. [Concomitant]
     Active Substance: MELPHALAN
     Dosage: 30 MILLIGRAM/SQ. METER, DAY 6
  11. VINCRISTINE [Concomitant]
     Active Substance: VINCRISTINE
     Dosage: UNK
  12. IFOSFAMIDE. [Concomitant]
     Active Substance: IFOSFAMIDE
     Dosage: UNK
  13. CYTARABINE. [Concomitant]
     Active Substance: CYTARABINE
     Dosage: 100 MILLIGRAM/SQ. METER, DAY 2? 5
  14. BICNU [Concomitant]
     Active Substance: CARMUSTINE
     Dosage: 300 MILLIGRAM/SQ. METER
  15. METHOTREXATE. [Concomitant]
     Active Substance: METHOTREXATE
     Dosage: UNK
  16. PREDNISONE. [Concomitant]
     Active Substance: PREDNISONE
     Dosage: UNK

REACTIONS (3)
  - Febrile neutropenia [Recovered/Resolved]
  - Mucosal toxicity [Recovered/Resolved]
  - Vomiting [Recovered/Resolved]
